FAERS Safety Report 6236524-4 (Version None)
Quarter: 2009Q2

REPORT INFORMATION
  Report Type: 
  Country: None (occurrence: None)
  Receive Date: 20090619
  Receipt Date: 20090611
  Transmission Date: 20091009
  Serious: Yes (Hospitalization)
  Sender: FDA-Public Use
  Company Number: B0540905A

PATIENT
  Sex: Female
  Weight: 74 kg

DRUGS (7)
  1. LAMOTRIGINE [Suspect]
     Indication: BIPOLAR DISORDER
     Dosage: 200MG PER DAY
     Route: 065
     Dates: start: 20080915
  2. ZYPREXA [Concomitant]
     Dosage: 10MG PER DAY
     Route: 048
     Dates: start: 20080816, end: 20081005
  3. AMITRIPTYLINE [Concomitant]
     Indication: DEPRESSION
     Dosage: 50MG TWICE PER DAY
     Route: 048
     Dates: start: 20000101, end: 20081005
  4. PANTOZOL [Concomitant]
     Dosage: 40MG PER DAY
     Route: 048
     Dates: start: 20080101, end: 20081005
  5. PRIADEL [Concomitant]
     Indication: BIPOLAR DISORDER
     Dosage: 400MG THREE TIMES PER DAY
     Route: 048
     Dates: start: 20000101, end: 20081005
  6. OXAZEPAM [Concomitant]
     Dosage: 10MG FOUR TIMES PER DAY
     Route: 065
  7. HALDOL [Concomitant]
     Dosage: 1MG TWICE PER DAY
     Route: 065
     Dates: start: 20080812

REACTIONS (22)
  - ALANINE AMINOTRANSFERASE INCREASED [None]
  - ASPARTATE AMINOTRANSFERASE INCREASED [None]
  - BLOOD ALBUMIN DECREASED [None]
  - BLOOD AMYLASE INCREASED [None]
  - BLOOD CALCIUM DECREASED [None]
  - BLOOD GLUCOSE INCREASED [None]
  - BLOOD LACTATE DEHYDROGENASE INCREASED [None]
  - BLOOD PHOSPHORUS INCREASED [None]
  - C-REACTIVE PROTEIN INCREASED [None]
  - FIBRIN D DIMER INCREASED [None]
  - GAMMA-GLUTAMYLTRANSFERASE INCREASED [None]
  - HEADACHE [None]
  - HEPATIC ENZYME ABNORMAL [None]
  - INCORRECT DOSE ADMINISTERED [None]
  - NEUROLEPTIC MALIGNANT SYNDROME [None]
  - PLATELET COUNT INCREASED [None]
  - PYREXIA [None]
  - RASH [None]
  - SEROTONIN SYNDROME [None]
  - SPEECH DISORDER [None]
  - THERAPEUTIC AGENT TOXICITY [None]
  - WHITE BLOOD CELL COUNT INCREASED [None]
